FAERS Safety Report 8971379 (Version 3)
Quarter: 2013Q1

REPORT INFORMATION
  Report Type: Spontaneous
  Country: US (occurrence: US)
  Receive Date: 20121218
  Receipt Date: 20130122
  Transmission Date: 20140127
  Serious: Yes (Hospitalization, Other)
  Sender: FDA-Public Use
  Company Number: US-PFIZER INC-2012309114

PATIENT
  Age: 33 Year
  Sex: Female

DRUGS (9)
  1. XALKORI [Suspect]
     Indication: LUNG CARCINOMA CELL TYPE UNSPECIFIED STAGE IV
     Dosage: 250 MG, 2X/DAY (EVERY 12 HRS)
     Route: 048
     Dates: start: 20121120, end: 20121205
  2. XALKORI [Suspect]
     Indication: LUNG NEOPLASM MALIGNANT
  3. ALIMTA [Concomitant]
     Indication: LUNG CARCINOMA CELL TYPE UNSPECIFIED STAGE IV
     Dosage: UNK
  4. AVASTIN [Concomitant]
     Indication: LUNG CARCINOMA CELL TYPE UNSPECIFIED STAGE IV
  5. DILAUDID [Concomitant]
     Indication: PAIN
     Dosage: 2 MG, Q 4-8 HRS PRN
     Dates: start: 20100420
  6. GABAPENTIN [Concomitant]
     Indication: NEURALGIA
     Dosage: 300 MG, 3X/DAY
     Dates: start: 20120323
  7. FOLIC ACID [Concomitant]
     Dosage: 1 MG, 1X/DAY
  8. ETHINYLESTRADIOL/NORGESTIMATE [Concomitant]
     Dosage: UNK, 1 TAB DAILY
  9. ONDANSETRON [Concomitant]
     Dosage: 8 MG, Q 8 HRS PRN

REACTIONS (1)
  - Pneumonitis [Recovered/Resolved]
